FAERS Safety Report 5196099-8 (Version None)
Quarter: 2006Q4

REPORT INFORMATION
  Report Type: 
  Country: None (occurrence: None)
  Receive Date: 20061226
  Receipt Date: 20061221
  Transmission Date: 20070319
  Serious: Yes (Other)
  Sender: FDA-Public Use
  Company Number: HQWYE884321DEC06

PATIENT
  Age: 61 Year
  Sex: Female

DRUGS (8)
  1. RAPAMUNE [Suspect]
     Indication: PROPHYLAXIS AGAINST TRANSPLANT REJECTION
     Dosage: 3 MG 1X PER 1 DAY ORAL
     Route: 048
     Dates: start: 20021124
  2. OMEPRAZOLE [Concomitant]
  3. ALENDRONATE SODIUM [Concomitant]
  4. SULFAMETHOXAZOLE + TRIMETHOPRIM [Concomitant]
  5. CALCIUM (CALCIUM) [Concomitant]
  6. BROMAZEPAM (BROMAZEPAM) [Concomitant]
  7. AMOROLFINE (AMOROLFINE) [Concomitant]
  8. CARVEDILOL [Concomitant]

REACTIONS (1)
  - TRANSPLANT REJECTION [None]
